FAERS Safety Report 23778230 (Version 2)
Quarter: 2024Q2

REPORT INFORMATION
  Report Type: Spontaneous
  Country: US (occurrence: US)
  Receive Date: 20240424
  Receipt Date: 20240614
  Transmission Date: 20240716
  Serious: Yes (Other)
  Sender: FDA-Public Use
  Company Number: US-PFIZER INC-202400092549

PATIENT
  Age: 87 Year
  Sex: Female
  Weight: 40.816 kg

DRUGS (5)
  1. PREMARIN [Suspect]
     Active Substance: ESTROGENS, CONJUGATED
     Indication: Prophylaxis urinary tract infection
     Dosage: UNK
  2. MIDODRINE [Concomitant]
     Active Substance: MIDODRINE
     Indication: Hypotension
     Dosage: ONE 5 MILLIGRAM TABLET THREE TIMES A DAY AND THEN PRN AS NEEDED
  3. MIDODRINE [Concomitant]
     Active Substance: MIDODRINE
     Dosage: ONE 5 MILLIGRAM TABLET THREE TIMES A DAY AND THEN PRN AS NEEDED
  4. FLUDROCORTISONE [Concomitant]
     Active Substance: FLUDROCORTISONE
     Indication: Hypotension
     Dosage: HALF OF A 0.1 MILLIGRAM TABLET, IT IS TWICE A DAY
  5. CARBIDOPA\LEVODOPA [Concomitant]
     Active Substance: CARBIDOPA\LEVODOPA
     Indication: Parkinson^s disease
     Dosage: TAKE 1 AND HALF 25/100 MILLIGRAM TABLET AT 7 AM AND 2 TABLETS AT NOON

REACTIONS (5)
  - Cardiac failure [Unknown]
  - Seizure [Unknown]
  - Bedridden [Unknown]
  - Off label use [Unknown]
  - Drug ineffective for unapproved indication [Unknown]

NARRATIVE: CASE EVENT DATE: 20230201
